FAERS Safety Report 9802729 (Version 1)
Quarter: 2014Q1

REPORT INFORMATION
  Report Type: Spontaneous
  Country: US (occurrence: US)
  Receive Date: 20140108
  Receipt Date: 20140108
  Transmission Date: 20141002
  Serious: Yes (Other)
  Sender: FDA-Public Use
  Company Number: US-BRISTOL-MYERS SQUIBB COMPANY-19969807

PATIENT
  Age: 60 Year
  Sex: Male

DRUGS (2)
  1. ONGLYZA TABS [Suspect]
     Dates: end: 20131107
  2. VICTOZA [Suspect]
     Dosage: 1DF: 1.8 MG IN AM AND 0.6 MG IN PM.
     Dates: end: 20131107

REACTIONS (1)
  - Renal failure acute [Not Recovered/Not Resolved]
